FAERS Safety Report 25798062 (Version 1)
Quarter: 2025Q3

REPORT INFORMATION
  Report Type: Report from Study
  Country: US (occurrence: US)
  Receive Date: 20250912
  Receipt Date: 20250912
  Transmission Date: 20251021
  Serious: Yes (Other)
  Sender: ABBVIE
  Company Number: US-ABBVIE-6455304

PATIENT
  Age: 63 Year
  Sex: Male

DRUGS (1)
  1. SKYRIZI [Suspect]
     Active Substance: RISANKIZUMAB-RZAA
     Indication: Colitis ulcerative
     Route: 058
     Dates: start: 20250406

REACTIONS (5)
  - Myocardial infarction [Recovering/Resolving]
  - Coronary artery occlusion [Unknown]
  - Vascular pseudoaneurysm [Unknown]
  - Chest pain [Unknown]
  - Complication associated with device [Unknown]

NARRATIVE: CASE EVENT DATE: 20250101
